FAERS Safety Report 7798675-2 (Version None)
Quarter: 2011Q4

REPORT INFORMATION
  Report Type: 
  Country: None (occurrence: None)
  Receive Date: 20111006
  Receipt Date: 20110920
  Transmission Date: 20120403
  Serious: Yes (Hospitalization)
  Sender: FDA-Public Use
  Company Number: US-BIOGENIDEC-2011BI029574

PATIENT
  Age: 53 Year
  Sex: Female

DRUGS (3)
  1. VERAPAMIL [Concomitant]
     Indication: HYPERTENSION
  2. TYSABRI [Suspect]
     Indication: MULTIPLE SCLEROSIS
     Route: 042
     Dates: start: 20101104, end: 20110713
  3. VERAPAMIL [Concomitant]
     Dates: start: 20110601

REACTIONS (8)
  - BLOOD FOLATE DECREASED [None]
  - DIZZINESS [None]
  - INFLAMMATION [None]
  - COUGH [None]
  - ANAEMIA [None]
  - HYPOTENSION [None]
  - BLOOD PRESSURE INCREASED [None]
  - PNEUMONIA [None]
